FAERS Safety Report 8329511-3 (Version None)
Quarter: 2012Q2

REPORT INFORMATION
  Report Type: 
  Country: None (occurrence: None)
  Receive Date: 20120502
  Receipt Date: 20120427
  Transmission Date: 20120825
  Serious: Yes (Other)
  Sender: FDA-Public Use
  Company Number: IE-ROCHE-1059069

PATIENT
  Sex: Male

DRUGS (6)
  1. NAPROSYN [Suspect]
     Indication: BACK PAIN
     Route: 048
     Dates: start: 20120315
  2. ASPIRIN [Concomitant]
  3. CARDURA [Concomitant]
  4. ISTIN [Concomitant]
  5. LIPITOR [Concomitant]
  6. LOSARTAN POTASSIUM [Concomitant]

REACTIONS (3)
  - VISION BLURRED [None]
  - PHOTOPSIA [None]
  - VISUAL ACUITY REDUCED [None]
